FAERS Safety Report 22849331 (Version 2)
Quarter: 2023Q4

REPORT INFORMATION
  Report Type: Spontaneous
  Country: GB (occurrence: GB)
  Receive Date: 20230822
  Receipt Date: 20231101
  Transmission Date: 20240109
  Serious: No
  Sender: FDA-Public Use
  Company Number: GB-VERTEX PHARMACEUTICALS-2023-012272

PATIENT
  Age: 14 Year
  Sex: Male

DRUGS (1)
  1. ELEXACAFTOR\IVACAFTOR\TEZACAFTOR [Suspect]
     Active Substance: ELEXACAFTOR\IVACAFTOR\TEZACAFTOR
     Indication: Cystic fibrosis
     Dosage: UNK FREQUENCY
     Route: 048

REACTIONS (5)
  - Weight decreased [Unknown]
  - Blood albumin decreased [Unknown]
  - Macroamylasaemia [Unknown]
  - Off label use [Unknown]
  - Abdominal pain [Unknown]
